FAERS Safety Report 4462528-8 (Version None)
Quarter: 2004Q3

REPORT INFORMATION
  Report Type: 
  Country: None (occurrence: None)
  Receive Date: 20040929
  Receipt Date: 20040616
  Transmission Date: 20050211
  Serious: Yes (Death, Other)
  Sender: FDA-Public Use
  Company Number: GB-MERCK-0406GBR00148

PATIENT
  Sex: Male

DRUGS (2)
  1. ANTIMICROBIAL (UNSPECIFIED) [Concomitant]
     Route: 065
  2. CANCIDAS [Suspect]
     Indication: CANDIDIASIS
     Route: 042
     Dates: start: 20040501, end: 20040610

REACTIONS (3)
  - LIVER FUNCTION TEST ABNORMAL [None]
  - RENAL FAILURE ACUTE [None]
  - THROMBOCYTOPENIA [None]
